FAERS Safety Report 8896574 (Version 1)
Quarter: 2012Q4

REPORT INFORMATION
  Report Type: Spontaneous
  Country: GB (occurrence: None)
  Receive Date: 20121105
  Receipt Date: 20121105
  Transmission Date: 20130627
  Serious: Yes (Hospitalization)
  Sender: FDA-Public Use
  Company Number: FK201203232

PATIENT
  Age: 54 Year
  Sex: Male

DRUGS (5)
  1. GEMCITABINE [Suspect]
     Route: 042
     Dates: start: 20120424
  2. SUNITINIB MALATE [Suspect]
     Dates: start: 20120403
  3. CISPLATIN [Suspect]
     Route: 042
     Dates: start: 20120424
  4. LANSOPRAZOLE (LANSOPRAZOLE) [Suspect]
  5. ZOMORPH(MORPHINE SULFATE) [Suspect]

REACTIONS (15)
  - Body temperature increased [None]
  - Lower respiratory tract infection [None]
  - Diarrhoea [None]
  - Vomiting [None]
  - Gamma-glutamyltransferase increased [None]
  - Alanine aminotransferase increased [None]
  - Blood alkaline phosphatase increased [None]
  - C-reactive protein increased [None]
  - Blood urea increased [None]
  - Blood chloride increased [None]
  - Blood glucose increased [None]
  - Blood lactate dehydrogenase increased [None]
  - Blood sodium decreased [None]
  - Blood calcium decreased [None]
  - Protein total decreased [None]
